FAERS Safety Report 23834943 (Version 1)
Quarter: 2024Q2

REPORT INFORMATION
  Report Type: Spontaneous
  Country: US (occurrence: US)
  Receive Date: 20240509
  Receipt Date: 20240509
  Transmission Date: 20240715
  Serious: No
  Sender: FDA-Public Use
  Company Number: US-CIPLA LTD.-2023US08242

PATIENT

DRUGS (4)
  1. ALBUTEROL [Suspect]
     Active Substance: ALBUTEROL
     Indication: Asthma
     Dosage: 180 MCG, BID (2 PUFFS TWICE A DAY)
     Route: 065
     Dates: start: 20231125
  2. ALBUTEROL [Suspect]
     Active Substance: ALBUTEROL
     Indication: Respiratory syncytial virus infection
  3. ALBUTEROL [Suspect]
     Active Substance: ALBUTEROL
     Indication: Bronchitis
  4. TELMISARTAN [Concomitant]
     Active Substance: TELMISARTAN
     Indication: Blood pressure abnormal
     Dosage: 20 MILLIGRAM, QD (ONCE IN A DAY)
     Route: 065

REACTIONS (7)
  - Illness [Unknown]
  - Cough [Recovered/Resolved]
  - Dyspnoea [Unknown]
  - Fatigue [Unknown]
  - Device issue [Unknown]
  - Device delivery system issue [Unknown]
  - Condition aggravated [Unknown]

NARRATIVE: CASE EVENT DATE: 20231201
